FAERS Safety Report 5247464-1 (Version None)
Quarter: 2007Q1

REPORT INFORMATION
  Report Type: 
  Country: None (occurrence: None)
  Receive Date: 20070220
  Receipt Date: 20070208
  Transmission Date: 20070707
  Serious: Yes (Hospitalization)
  Sender: FDA-Public Use
  Company Number: 2007BI003032

PATIENT
  Age: 35 Year
  Sex: Male

DRUGS (1)
  1. NATALIZUMAB [Suspect]
     Indication: MULTIPLE SCLEROSIS
     Dosage: 300 MG; QM; IV
     Route: 042
     Dates: start: 20061102

REACTIONS (7)
  - ASTHENIA [None]
  - CELLULITIS [None]
  - ERYTHEMA [None]
  - FALL [None]
  - INJURY [None]
  - JOINT SPRAIN [None]
  - MOBILITY DECREASED [None]
